FAERS Safety Report 6695532-X (Version None)
Quarter: 2010Q2

REPORT INFORMATION
  Report Type: 
  Country: None (occurrence: None)
  Receive Date: 20100426
  Receipt Date: 20100416
  Transmission Date: 20101027
  Serious: Yes (Hospitalization)
  Sender: FDA-Public Use
  Company Number: US-BIOGENIDEC-2009BI021102

PATIENT
  Age: 60 Year
  Sex: Female
  Weight: 49 kg

DRUGS (2)
  1. TYSABRI [Suspect]
     Indication: MULTIPLE SCLEROSIS
     Route: 042
     Dates: start: 20070926, end: 20081231
  2. TYSABRI [Suspect]
     Route: 042
     Dates: start: 20090609

REACTIONS (11)
  - BLOOD POTASSIUM DECREASED [None]
  - COGNITIVE DISORDER [None]
  - FATIGUE [None]
  - FEELING DRUNK [None]
  - GENERAL SYMPTOM [None]
  - LOSS OF CONSCIOUSNESS [None]
  - MULTIPLE SCLEROSIS RELAPSE [None]
  - NEUROPATHY PERIPHERAL [None]
  - PNEUMONIA [None]
  - SYNCOPE [None]
  - TEMPERATURE INTOLERANCE [None]
